FAERS Safety Report 12643011 (Version 1)
Quarter: 2016Q3

REPORT INFORMATION
  Report Type: Report from Study
  Country: US (occurrence: US)
  Receive Date: 20160811
  Receipt Date: 20160811
  Transmission Date: 20161109
  Serious: No
  Sender: FDA-Public Use
  Company Number: PHEH2016US019857

PATIENT
  Sex: Female

DRUGS (1)
  1. COSENTYX [Suspect]
     Active Substance: SECUKINUMAB
     Indication: PSORIASIS
     Dosage: 300 MG, QMO
     Route: 058
     Dates: start: 20151217, end: 20160301

REACTIONS (7)
  - Rhinitis [Unknown]
  - Rhinalgia [Unknown]
  - Sinusitis [Unknown]
  - Ear infection [Unknown]
  - Secretion discharge [Unknown]
  - Skin fissures [Unknown]
  - Oral herpes [Unknown]
